FAERS Safety Report 7334250-1 (Version None)
Quarter: 2011Q1

REPORT INFORMATION
  Report Type: 
  Country: None (occurrence: None)
  Receive Date: 20110302
  Receipt Date: 20110302
  Transmission Date: 20110831
  Serious: No
  Sender: FDA-Public Use
  Company Number: None

PATIENT
  Age: 68 Year
  Sex: Female
  Weight: 58.9676 kg

DRUGS (1)
  1. CLARITIN [Suspect]
     Indication: ALLERGY TO ANIMAL
     Dosage: 1 PILL 1 X PER DAY
     Dates: start: 20110228, end: 20110228

REACTIONS (6)
  - NIGHTMARE [None]
  - FATIGUE [None]
  - NAUSEA [None]
  - HEADACHE [None]
  - HEART RATE INCREASED [None]
  - AGITATION [None]
